FAERS Safety Report 13468874 (Version 1)
Quarter: 2017Q2

REPORT INFORMATION
  Report Type: Spontaneous
  Country: FR (occurrence: FR)
  Receive Date: 20170421
  Receipt Date: 20170421
  Transmission Date: 20170830
  Serious: Yes (Hospitalization, Other)
  Sender: FDA-Public Use
  Company Number: FR-PFIZER INC-2017170506

PATIENT
  Age: 86 Year
  Sex: Female

DRUGS (8)
  1. PANTOPRAZOLE [Suspect]
     Active Substance: PANTOPRAZOLE
     Dosage: 40 MG, QD
     Route: 065
     Dates: start: 20170318
  2. PREVISCAN /00789001/ [Concomitant]
     Active Substance: FLUINDIONE
     Dosage: 10 MG, QD
     Route: 048
     Dates: end: 20170307
  3. URISPAS [Suspect]
     Active Substance: FLAVOXATE HYDROCHLORIDE
     Indication: URINARY INCONTINENCE
     Dosage: UNK, QD
     Route: 048
     Dates: start: 20170203, end: 20170307
  4. MELAXOSE [Suspect]
     Active Substance: LACTULOSE\PARAFFIN
     Indication: CONSTIPATION
     Dosage: UNK, BID
     Route: 048
     Dates: start: 20170203, end: 20170307
  5. TARDYFERON [Concomitant]
     Active Substance: FERROUS SULFATE
     Dosage: UNK, BID
     Route: 048
     Dates: start: 20170303, end: 20170307
  6. PANTOPRAZOLE [Suspect]
     Active Substance: PANTOPRAZOLE
     Indication: GASTROOESOPHAGEAL REFLUX DISEASE
     Dosage: 20 MG, QD
     Route: 048
     Dates: start: 20170303, end: 20170307
  7. FUROSEMIDE. [Concomitant]
     Active Substance: FUROSEMIDE
     Dosage: 60 MG, QD
     Route: 048
  8. DOLIPRANE [Concomitant]
     Active Substance: ACETAMINOPHEN
     Dosage: UNK
     Route: 048

REACTIONS (2)
  - Epistaxis [Unknown]
  - Agranulocytosis [Recovered/Resolved]

NARRATIVE: CASE EVENT DATE: 20170307
